FAERS Safety Report 5119454-0 (Version None)
Quarter: 2006Q3

REPORT INFORMATION
  Report Type: 
  Country: None (occurrence: None)
  Receive Date: 20060928
  Receipt Date: 20060918
  Transmission Date: 20061208
  Serious: Yes (Other)
  Sender: FDA-Public Use
  Company Number: 2006112286

PATIENT
  Age: 34 Year
  Sex: Female
  Weight: 61.2356 kg

DRUGS (1)
  1. ZOLOFT [Suspect]
     Indication: DEPRESSION
     Dosage: 50 MG, 1 IN 1 D)
     Dates: start: 20050601

REACTIONS (3)
  - CLITORAL ENGORGEMENT [None]
  - ENLARGED CLITORIS [None]
  - GENITAL PAIN FEMALE [None]
